FAERS Safety Report 23072256 (Version 2)
Quarter: 2023Q4

REPORT INFORMATION
  Report Type: Spontaneous
  Country: AT (occurrence: AT)
  Receive Date: 20231017
  Receipt Date: 20231108
  Transmission Date: 20240110
  Serious: Yes (Other)
  Sender: FDA-Public Use
  Company Number: AT-ROCHE-3433903

PATIENT
  Age: 55 Year
  Sex: Female

DRUGS (6)
  1. XGEVA [Suspect]
     Active Substance: DENOSUMAB
     Indication: Non-small cell lung cancer
     Dosage: UNK
     Route: 065
     Dates: start: 202205
  2. LOMUSTINE [Suspect]
     Active Substance: LOMUSTINE
     Indication: Non-small cell lung cancer
     Dosage: UNK
     Route: 065
     Dates: start: 202205
  3. BLEOMYCIN [Suspect]
     Active Substance: BLEOMYCIN SULFATE
     Indication: Non-small cell lung cancer
     Dosage: UNK
     Route: 065
     Dates: start: 202205
  4. RITUXIMAB [Suspect]
     Active Substance: RITUXIMAB
     Indication: Non-small cell lung cancer
     Route: 065
  5. GAVRETO [Suspect]
     Active Substance: PRALSETINIB
     Indication: Non-small cell lung cancer
     Dosage: 400 MILLIGRAM
     Route: 048
  6. VINDESINE [Suspect]
     Active Substance: VINDESINE
     Indication: Non-small cell lung cancer
     Dosage: UNK
     Route: 065
     Dates: start: 202205

REACTIONS (2)
  - Non-small cell lung cancer [Unknown]
  - Off label use [Unknown]

NARRATIVE: CASE EVENT DATE: 20220501
